FAERS Safety Report 4685409-3 (Version None)
Quarter: 2005Q2

REPORT INFORMATION
  Report Type: 
  Country: None (occurrence: None)
  Receive Date: 20050608
  Receipt Date: 20050527
  Transmission Date: 20051028
  Serious: Yes (Hospitalization)
  Sender: FDA-Public Use
  Company Number: FR-GLAXOSMITHKLINE-B0383404A

PATIENT
  Age: 27 Year
  Sex: Female
  Weight: 50 kg

DRUGS (6)
  1. TELZIR [Suspect]
     Indication: HIV INFECTION
     Route: 048
     Dates: start: 20050204
  2. NORVIR [Suspect]
     Indication: HIV INFECTION
     Route: 048
     Dates: start: 20050204
  3. SUSTIVA [Suspect]
     Indication: HIV INFECTION
     Route: 048
     Dates: start: 20050204
  4. DOLIPRANE [Suspect]
     Route: 048
     Dates: start: 20050212
  5. ACTIFED [Suspect]
     Route: 048
     Dates: start: 20050212
  6. ANGISPRAY (FRANCE) [Suspect]
     Route: 002
     Dates: start: 20050212

REACTIONS (8)
  - BRONCHITIS ACUTE [None]
  - COUGH [None]
  - ERYTHEMA [None]
  - GENERAL PHYSICAL HEALTH DETERIORATION [None]
  - INFLUENZA LIKE ILLNESS [None]
  - LYMPHADENOPATHY [None]
  - PYREXIA [None]
  - RASH MACULO-PAPULAR [None]
